FAERS Safety Report 18042304 (Version 1)
Quarter: 2020Q3

REPORT INFORMATION
  Report Type: Spontaneous
  Country: US (occurrence: US)
  Receive Date: 20200715
  Receipt Date: 20200715
  Transmission Date: 20201103
  Serious: Yes (Hospitalization)
  Sender: FDA-Public Use
  Company Number: None

PATIENT

DRUGS (1)
  1. VASOPRESSIN INJECTION [Suspect]
     Active Substance: VASOPRESSIN

REACTIONS (3)
  - Product selection error [None]
  - Intercepted product dispensing error [None]
  - Device dispensing error [None]
